FAERS Safety Report 7373361 (Version 5)
Quarter: 2015Q2

REPORT INFORMATION
  Report Type: Spontaneous
  Country: US (occurrence: US)
  Receive Date: 20100503
  Receipt Date: 20150519
  Transmission Date: 20150821
  Serious: Yes (Other)
  Sender: FDA-Public Use
  Company Number: US-ASTRAZENECA-2010SE08198

PATIENT
  Age: 51 Year
  Sex: Female
  Weight: 81.6 kg

DRUGS (23)
  1. NEXIUM [Interacting]
     Active Substance: ESOMEPRAZOLE MAGNESIUM
     Dosage: ONCE A DAY
     Route: 048
  2. NEXIUM [Interacting]
     Active Substance: ESOMEPRAZOLE MAGNESIUM
     Dosage: ONCE A DAY
     Route: 048
     Dates: start: 2004
  3. CRESTOR [Interacting]
     Active Substance: ROSUVASTATIN CALCIUM
     Indication: BLOOD CHOLESTEROL INCREASED
     Dosage: EVERY OTHER DAY
     Route: 048
  4. KEFLEX [Suspect]
     Active Substance: CEPHALEXIN
     Route: 065
  5. PREDNISONE. [Concomitant]
     Active Substance: PREDNISONE
     Dosage: AS NEEDED
  6. NEXIUM [Interacting]
     Active Substance: ESOMEPRAZOLE MAGNESIUM
     Dosage: TWO TIMES A DAY
     Route: 048
  7. CRESTOR [Interacting]
     Active Substance: ROSUVASTATIN CALCIUM
     Indication: BLOOD CHOLESTEROL INCREASED
     Route: 048
     Dates: start: 2004
  8. CRESTOR [Interacting]
     Active Substance: ROSUVASTATIN CALCIUM
     Indication: BLOOD CHOLESTEROL INCREASED
     Route: 048
  9. PREDNISONE. [Concomitant]
     Active Substance: PREDNISONE
  10. PROGESTERINE IUD [Concomitant]
     Indication: ENDOMETRIAL HYPERTROPHY
  11. VITAMIN B3 [Concomitant]
     Active Substance: NIACIN
  12. CRESTOR [Interacting]
     Active Substance: ROSUVASTATIN CALCIUM
     Indication: BLOOD CHOLESTEROL INCREASED
     Route: 048
  13. MEVACOR [Concomitant]
     Active Substance: LOVASTATIN
  14. ZITHROMAX [Concomitant]
     Active Substance: AZITHROMYCIN DIHYDRATE
     Indication: SINUSITIS
     Dates: end: 20050227
  15. CRESTOR [Interacting]
     Active Substance: ROSUVASTATIN CALCIUM
     Indication: BLOOD CHOLESTEROL INCREASED
     Route: 048
     Dates: end: 201108
  16. CRESTOR [Interacting]
     Active Substance: ROSUVASTATIN CALCIUM
     Indication: BLOOD CHOLESTEROL INCREASED
     Route: 048
     Dates: start: 20050201, end: 20050227
  17. CRESTOR [Interacting]
     Active Substance: ROSUVASTATIN CALCIUM
     Indication: BLOOD CHOLESTEROL INCREASED
     Route: 048
  18. ATACAND [Suspect]
     Active Substance: CANDESARTAN CILEXETIL
     Route: 048
  19. XANAX [Concomitant]
     Active Substance: ALPRAZOLAM
  20. NEXIUM [Interacting]
     Active Substance: ESOMEPRAZOLE MAGNESIUM
     Route: 048
     Dates: start: 2002, end: 20111223
  21. PRILOSEC OTC [Suspect]
     Active Substance: OMEPRAZOLE MAGNESIUM
     Route: 048
  22. ZETIA [Suspect]
     Active Substance: EZETIMIBE
     Route: 065
     Dates: start: 2004, end: 201003
  23. VERELAN [Concomitant]
     Active Substance: VERAPAMIL HYDROCHLORIDE

REACTIONS (32)
  - Adverse drug reaction [Unknown]
  - Asthenia [Unknown]
  - 21-hydroxylase deficiency [Unknown]
  - Arthralgia [Not Recovered/Not Resolved]
  - Somnolence [Unknown]
  - Ill-defined disorder [Unknown]
  - Adverse event [Unknown]
  - Vomiting [Recovered/Resolved]
  - Off label use [Unknown]
  - Tendon rupture [Unknown]
  - Musculoskeletal pain [Not Recovered/Not Resolved]
  - Weight decreased [Unknown]
  - Malaise [Recovering/Resolving]
  - Fractured coccyx [Unknown]
  - Pain [Unknown]
  - Sinusitis [Recovering/Resolving]
  - Myalgia [Recovered/Resolved]
  - Insomnia [Unknown]
  - Drug interaction [Unknown]
  - Vision blurred [Recovering/Resolving]
  - Nausea [Recovered/Resolved]
  - Musculoskeletal chest pain [Recovered/Resolved]
  - Fatigue [Unknown]
  - Herpes zoster [Unknown]
  - Flushing [Recovering/Resolving]
  - Pain in extremity [Recovering/Resolving]
  - Constipation [Unknown]
  - Muscle disorder [Unknown]
  - Gastric disorder [Unknown]
  - Endometrial hypertrophy [Unknown]
  - Abdominal pain upper [Unknown]
  - Malaise [Recovered/Resolved]

NARRATIVE: CASE EVENT DATE: 20050224
